FAERS Safety Report 16056696 (Version 1)
Quarter: 2019Q2

REPORT INFORMATION
  Report Type: Spontaneous
  Country: US (occurrence: US)
  Receive Date: 20190310
  Receipt Date: 20190310
  Transmission Date: 20190711
  Serious: Yes (Disabling)
  Sender: FDA-Public Use
  Company Number: None

PATIENT
  Age: 39 Year
  Sex: Female
  Weight: 58.05 kg

DRUGS (4)
  1. IMITREX [Concomitant]
     Active Substance: SUMATRIPTAN SUCCINATE
  2. ADVIL [Concomitant]
     Active Substance: IBUPROFEN
  3. EXCEDRIN [Concomitant]
     Active Substance: ACETAMINOPHEN\ASPIRIN\CAFFEINE
  4. AIMOVIG [Suspect]
     Active Substance: ERENUMAB-AOOE
     Indication: MIGRAINE
     Dosage: ?          QUANTITY:1 INJECTION(S);OTHER FREQUENCY:1/MO;OTHER ROUTE:INJECTION INTO THIGH?
     Dates: start: 20180925, end: 20181025

REACTIONS (12)
  - Weight decreased [None]
  - Nausea [None]
  - Insomnia [None]
  - Fatigue [None]
  - Constipation [None]
  - Chills [None]
  - Dizziness [None]
  - Anxiety [None]
  - Depression [None]
  - Decreased appetite [None]
  - Acne cystic [None]
  - Migraine [None]

NARRATIVE: CASE EVENT DATE: 20180925
